FAERS Safety Report 4392077-7 (Version None)
Quarter: 2004Q3

REPORT INFORMATION
  Report Type: 
  Country: None (occurrence: None)
  Receive Date: 20040702
  Receipt Date: 20040623
  Transmission Date: 20050211
  Serious: Yes (Hospitalization, Other)
  Sender: FDA-Public Use
  Company Number: 2004042308

PATIENT
  Age: 65 Year
  Sex: Female
  Weight: 77.1115 kg

DRUGS (3)
  1. ZYRTEC [Suspect]
     Indication: ILL-DEFINED DISORDER
     Dates: end: 20040601
  2. LIPITOR [Suspect]
     Indication: BLOOD CHOLESTEROL
  3. GENERAL NUTRIENTS [Suspect]
     Indication: ILL-DEFINED DISORDER

REACTIONS (4)
  - DRUG INTERACTION [None]
  - FOOD INTERACTION [None]
  - PYREXIA [None]
  - URTICARIA [None]
